FAERS Safety Report 22394131 (Version 1)
Quarter: 2023Q2

REPORT INFORMATION
  Report Type: Spontaneous
  Country: US (occurrence: US)
  Receive Date: 20230601
  Receipt Date: 20230601
  Transmission Date: 20230721
  Serious: No
  Sender: FDA-Public Use
  Company Number: US-APIL-2313412US

PATIENT
  Sex: Female
  Weight: 72.574 kg

DRUGS (3)
  1. BYSTOLIC [Suspect]
     Active Substance: NEBIVOLOL HYDROCHLORIDE
     Indication: Blood pressure measurement
     Dosage: 20 MILLIGRAM
     Route: 048
     Dates: start: 2022, end: 2022
  2. BYSTOLIC [Suspect]
     Active Substance: NEBIVOLOL HYDROCHLORIDE
     Dosage: 1 IN MORNING 1 IN EVENING
     Route: 048
     Dates: start: 2010, end: 2022
  3. OLMESARTAN [Suspect]
     Active Substance: OLMESARTAN
     Indication: Blood pressure measurement
     Dosage: 20 MG
     Dates: start: 20220517

REACTIONS (10)
  - Hypothyroidism [Not Recovered/Not Resolved]
  - Urinary tract infection [Not Recovered/Not Resolved]
  - Chest discomfort [Recovered/Resolved]
  - Heart rate irregular [Recovered/Resolved]
  - Influenza [Recovered/Resolved]
  - Malaise [Recovered/Resolved]
  - Dysphagia [Not Recovered/Not Resolved]
  - Weight increased [Recovered/Resolved]
  - Abdominal discomfort [Recovered/Resolved]
  - Nausea [Recovered/Resolved]

NARRATIVE: CASE EVENT DATE: 20130101
